FAERS Safety Report 4550426-0 (Version None)
Quarter: 2005Q1

REPORT INFORMATION
  Report Type: 
  Country: None (occurrence: None)
  Receive Date: 20050112
  Receipt Date: 20020327
  Transmission Date: 20050727
  Serious: Yes (Hospitalization, Other)
  Sender: FDA-Public Use
  Company Number: GB-GLAXOSMITHKLINE-B0263915A

PATIENT
  Age: 14 Year
  Sex: Male

DRUGS (4)
  1. LAMOTRIGINE [Suspect]
     Indication: EPILEPSY
     Dosage: 300MG IN THE MORNING
     Route: 048
     Dates: start: 20010101
  2. CARBAMAZEPINE [Suspect]
     Indication: EPILEPSY
     Dosage: 300MG TWICE PER DAY
     Route: 048
     Dates: end: 20020315
  3. LORAZEPAM [Suspect]
     Indication: STATUS EPILEPTICUS
     Route: 042
     Dates: start: 20020101, end: 20020101
  4. DIAZEPAM [Concomitant]
     Indication: EPILEPSY
     Route: 054

REACTIONS (10)
  - ACCIDENTAL OVERDOSE [None]
  - COAGULATION TIME PROLONGED [None]
  - COAGULOPATHY [None]
  - COMA [None]
  - CONVULSION [None]
  - HEPATOTOXICITY [None]
  - HYPOXIA [None]
  - LIVER FUNCTION TEST ABNORMAL [None]
  - MEDICATION ERROR [None]
  - MULTI-ORGAN FAILURE [None]
